FAERS Safety Report 12527953 (Version 5)
Quarter: 2016Q4

REPORT INFORMATION
  Report Type: Report from Study
  Country: MX (occurrence: MX)
  Receive Date: 20160705
  Receipt Date: 20161005
  Transmission Date: 20170207
  Serious: Yes (Other)
  Sender: FDA-Public Use
  Company Number: MX-BAYER-2016-120707

PATIENT
  Age: 52 Year
  Sex: Female
  Weight: 60 kg

DRUGS (1)
  1. BETAFERON [Suspect]
     Active Substance: INTERFERON BETA-1B
     Indication: MULTIPLE SCLEROSIS
     Dosage: 1 DF, TIW (APPLIES EVERY EACH THIRD DAY )
     Dates: start: 20160602

REACTIONS (24)
  - Injection site pain [Not Recovered/Not Resolved]
  - Product use issue [Not Recovered/Not Resolved]
  - Headache [Recovered/Resolved]
  - Insomnia [Not Recovered/Not Resolved]
  - Mobility decreased [Not Recovered/Not Resolved]
  - Fatigue [Not Recovered/Not Resolved]
  - Depressed mood [Not Recovered/Not Resolved]
  - Hypoaesthesia [None]
  - Muscle rigidity [None]
  - Tearfulness [Not Recovered/Not Resolved]
  - Major depression [Not Recovered/Not Resolved]
  - Nuchal rigidity [None]
  - Insomnia [Not Recovered/Not Resolved]
  - Pain in extremity [None]
  - Malaise [Not Recovered/Not Resolved]
  - Apathy [Not Recovered/Not Resolved]
  - Influenza [Not Recovered/Not Resolved]
  - Asthenia [Not Recovered/Not Resolved]
  - Somnolence [Not Recovered/Not Resolved]
  - Exaggerated startle response [Not Recovered/Not Resolved]
  - Pain [Recovered/Resolved]
  - Renal pain [Not Recovered/Not Resolved]
  - Pain [Not Recovered/Not Resolved]
  - Clumsiness [None]

NARRATIVE: CASE EVENT DATE: 20160602
